FAERS Safety Report 18720962 (Version 8)
Quarter: 2022Q2

REPORT INFORMATION
  Report Type: Spontaneous
  Country: US (occurrence: US)
  Receive Date: 20210108
  Receipt Date: 20220525
  Transmission Date: 20220721
  Serious: Yes (Hospitalization, Other)
  Sender: FDA-Public Use
  Company Number: US-ALXN-A202119584

PATIENT
  Sex: Female

DRUGS (3)
  1. SOLIRIS [Suspect]
     Active Substance: ECULIZUMAB
     Indication: Myasthenia gravis
     Dosage: 1200 MG, Q2W
     Route: 042
     Dates: start: 20180627
  2. VANCOMYCIN [Suspect]
     Active Substance: VANCOMYCIN
     Indication: Cellulitis
     Route: 065
  3. IMURAN                             /00001501/ [Concomitant]
     Indication: Immunosuppression
     Dosage: UNK
     Route: 065

REACTIONS (16)
  - Injury [Unknown]
  - Clostridium difficile infection [Not Recovered/Not Resolved]
  - Neuropathy peripheral [Unknown]
  - Cellulitis [Unknown]
  - Gait disturbance [Not Recovered/Not Resolved]
  - Hypoaesthesia [Unknown]
  - Suspected COVID-19 [Unknown]
  - Blood pressure decreased [Unknown]
  - Scar [Unknown]
  - Poor venous access [Unknown]
  - Catheter site pain [Unknown]
  - Catheter site scar [Unknown]
  - Eczema [Not Recovered/Not Resolved]
  - Diarrhoea [Unknown]
  - Haematoma [Unknown]
  - Sleep disorder [Unknown]
